FAERS Safety Report 7852074-3 (Version None)
Quarter: 2011Q3

REPORT INFORMATION
  Report Type: 
  Country: None (occurrence: None)
  Receive Date: 20110906
  Receipt Date: 20110613
  Transmission Date: 20111222
  Serious: No
  Sender: FDA-Public Use
  Company Number: 201106020

PATIENT
  Age: 74 Year
  Sex: Female

DRUGS (3)
  1. LOVASTATNI (LOVASTATIN) [Concomitant]
  2. XIAFLEX [Suspect]
     Indication: DUPUYTREN'S CONTRACTURE
     Dosage: 0.21 CC, INTRALESIONAL
     Route: 026
     Dates: start: 20110526, end: 20110526
  3. LISINOPRIL [Concomitant]

REACTIONS (3)
  - ECCHYMOSIS [None]
  - PAIN IN EXTREMITY [None]
  - INCORRECT DOSE ADMINISTERED [None]
